FAERS Safety Report 6730884-3 (Version None)
Quarter: 2010Q2

REPORT INFORMATION
  Report Type: 
  Country: None (occurrence: None)
  Receive Date: 20100518
  Receipt Date: 20100506
  Transmission Date: 20101027
  Serious: Yes (Hospitalization, Other)
  Sender: FDA-Public Use
  Company Number: PHHY2010US27256

PATIENT
  Sex: Male
  Weight: 82 kg

DRUGS (8)
  1. EXJADE [Suspect]
     Indication: IRON METABOLISM DISORDER
     Dosage: 1500 MG, PER DAY
     Route: 048
     Dates: start: 20100413
  2. EXJADE [Suspect]
     Dosage: 500 MG TABLET DAILY
     Route: 048
  3. LEXAPRO [Concomitant]
  4. NITROGLYCERIN [Concomitant]
  5. ZYPREXA [Concomitant]
  6. ASPIRIN [Concomitant]
  7. LIPITOR [Concomitant]
  8. KLONOPIN [Concomitant]

REACTIONS (12)
  - BLADDER INJURY [None]
  - COLON INJURY [None]
  - DIARRHOEA [None]
  - EAR INFECTION [None]
  - INFLUENZA [None]
  - NAUSEA [None]
  - PAIN [None]
  - POST PROCEDURAL HAEMORRHAGE [None]
  - PROSTATE CANCER [None]
  - RECTAL HAEMORRHAGE [None]
  - URINARY BLADDER EXCISION [None]
  - VOMITING [None]
